FAERS Safety Report 8529493-5 (Version None)
Quarter: 2012Q3

REPORT INFORMATION
  Report Type: 
  Country: None (occurrence: None)
  Receive Date: 20120723
  Receipt Date: 20120713
  Transmission Date: 20120928
  Serious: Yes (Other)
  Sender: FDA-Public Use
  Company Number: US-US-EMD SERONO, INC.-7148201

PATIENT
  Sex: Female

DRUGS (8)
  1. VITAMIN D [Concomitant]
     Indication: PRODUCT USED FOR UNKNOWN INDICATION
     Route: 048
  2. SYNTHROID [Concomitant]
     Indication: THYROID DISORDER
     Route: 048
  3. SAVELLA [Concomitant]
     Indication: FIBROMYALGIA
     Route: 048
  4. MELATONIN [Concomitant]
     Indication: PRODUCT USED FOR UNKNOWN INDICATION
     Route: 048
  5. MULTI-VITAMIN [Concomitant]
     Indication: PRODUCT USED FOR UNKNOWN INDICATION
  6. SAIZEN [Suspect]
     Indication: GROWTH HORMONE DEFICIENCY
     Route: 058
     Dates: start: 20110518
  7. UNSPECIFIED STEROID SUPPLEMENT [Concomitant]
     Indication: ADRENAL INSUFFICIENCY
  8. PROMETRIUM [Concomitant]
     Indication: MENOPAUSE
     Route: 048

REACTIONS (17)
  - WEIGHT DECREASED [None]
  - DYSPEPSIA [None]
  - AMNESIA [None]
  - TACHYCARDIA [None]
  - INCREASED TENDENCY TO BRUISE [None]
  - ARTHRALGIA [None]
  - TONSILLECTOMY [None]
  - ALOPECIA [None]
  - HAIR GROWTH ABNORMAL [None]
  - LIVEDO RETICULARIS [None]
  - TEMPERATURE INTOLERANCE [None]
  - FEELING HOT [None]
  - POOR QUALITY SLEEP [None]
  - ONYCHOCLASIS [None]
  - INSOMNIA [None]
  - THIRST [None]
  - ASTHENIA [None]
